FAERS Safety Report 23135282 (Version 4)
Quarter: 2024Q1

REPORT INFORMATION
  Report Type: Report from Study
  Country: US (occurrence: US)
  Receive Date: 20231101
  Receipt Date: 20240216
  Transmission Date: 20240410
  Serious: Yes (Other)
  Sender: FDA-Public Use
  Company Number: US-ABBVIE-5475456

PATIENT
  Sex: Male

DRUGS (1)
  1. VENCLEXTA [Suspect]
     Active Substance: VENETOCLAX
     Indication: Acute myeloid leukaemia
     Route: 048
     Dates: start: 20230921

REACTIONS (8)
  - Transfusion [Unknown]
  - Dysphonia [Unknown]
  - Lumbar puncture [Recovering/Resolving]
  - Hypotension [Unknown]
  - Platelet transfusion [Unknown]
  - Haemoglobin decreased [Unknown]
  - Constipation [Unknown]
  - Loss of consciousness [Unknown]

NARRATIVE: CASE EVENT DATE: 20230101
